FAERS Safety Report 19738980 (Version 1)
Quarter: 2021Q3

REPORT INFORMATION
  Report Type: Spontaneous
  Country: MX (occurrence: MX)
  Receive Date: 20210824
  Receipt Date: 20210824
  Transmission Date: 20211014
  Serious: Yes (Death, Other)
  Sender: FDA-Public Use
  Company Number: MX-BAYER-2021-197235

PATIENT
  Sex: Male

DRUGS (2)
  1. NEXAVAR [Suspect]
     Active Substance: SORAFENIB
     Indication: HEPATOCELLULAR CARCINOMA
     Dosage: 100 MG, BID FOR 3 DAYS
     Route: 048
     Dates: start: 20210628
  2. NEXAVAR [Suspect]
     Active Substance: SORAFENIB
     Indication: HEPATOCELLULAR CARCINOMA
     Dosage: 200 MG, BID FOR 7 DAYS
     Route: 048

REACTIONS (6)
  - Muscular weakness [None]
  - Ascites [None]
  - Off label use [None]
  - Encephalopathy [None]
  - Hepatocellular carcinoma [Fatal]
  - Fatigue [None]
